FAERS Safety Report 8590167-6 (Version None)
Quarter: 2012Q3

REPORT INFORMATION
  Report Type: 
  Country: None (occurrence: None)
  Receive Date: 20120813
  Receipt Date: 20120807
  Transmission Date: 20120928
  Serious: Yes (Other)
  Sender: FDA-Public Use
  Company Number: US-PFIZER INC-2012192421

PATIENT
  Age: 51 Year
  Sex: Female
  Weight: 70.748 kg

DRUGS (2)
  1. LYRICA [Suspect]
     Indication: BACK PAIN
     Dosage: UNK
     Route: 048
  2. LYRICA [Suspect]
     Indication: NECK PAIN
     Dosage: 375 MG, 1X/DAY, 225MG IN MORNING AND 150MG IN EVENING
     Route: 048

REACTIONS (3)
  - HEADACHE [None]
  - MUSCLE RUPTURE [None]
  - MUSCLE STRAIN [None]
